FAERS Safety Report 19001530 (Version 1)
Quarter: 2021Q1

REPORT INFORMATION
  Report Type: Spontaneous
  Country: US (occurrence: US)
  Receive Date: 20210308
  Receipt Date: 20210308
  Transmission Date: 20210420
  Serious: Yes (Other)
  Sender: FDA-Public Use
  Company Number: None

PATIENT
  Age: 15 Year
  Sex: Male

DRUGS (2)
  1. D8 HEMP OIL [Suspect]
     Active Substance: .DELTA.8-TETRAHYDROCANNABINOL\HERBALS
  2. PROVAPOR [NICOTINE\PROPYLENE GLYCOL] [Suspect]
     Active Substance: NICOTINE\PROPYLENE GLYCOL

REACTIONS (2)
  - Unresponsive to stimuli [None]
  - Poisoning [None]
